FAERS Safety Report 17119441 (Version 1)
Quarter: 2019Q4

REPORT INFORMATION
  Report Type: Spontaneous
  Country: RO (occurrence: RO)
  Receive Date: 20191206
  Receipt Date: 20191206
  Transmission Date: 20200122
  Serious: Yes (Other)
  Sender: FDA-Public Use
  Company Number: RO-ROCHE-2485644

PATIENT
  Age: 63 Year

DRUGS (2)
  1. OXALIPLATIN. [Concomitant]
     Active Substance: OXALIPLATIN
     Indication: RECTOSIGMOID CANCER STAGE IV
     Dosage: ON DAY 1
     Route: 065
  2. CAPECITABINE. [Suspect]
     Active Substance: CAPECITABINE
     Indication: COLORECTAL ADENOCARCINOMA
     Route: 048

REACTIONS (1)
  - Prinzmetal angina [Unknown]
